FAERS Safety Report 14331638 (Version 1)
Quarter: 2017Q4

REPORT INFORMATION
  Report Type: Other
  Country: GB (occurrence: GB)
  Receive Date: 20171228
  Receipt Date: 20171228
  Transmission Date: 20180321
  Serious: Yes (Hospitalization)
  Sender: FDA-Public Use
  Company Number: GB-APOTEX-2009AP005074

PATIENT
  Age: 33 Year
  Sex: Male

DRUGS (2)
  1. SERTRALINE [Suspect]
     Active Substance: SERTRALINE HYDROCHLORIDE
     Route: 065
  2. RISPERIDONE. [Suspect]
     Active Substance: RISPERIDONE
     Indication: SCHIZOPHRENIA
     Route: 065

REACTIONS (6)
  - Respiratory failure [Recovered/Resolved]
  - Dyspnoea [Unknown]
  - Pneumothorax [Unknown]
  - Cough [Unknown]
  - Eosinophilic pneumonia [Unknown]
  - Pulmonary fibrosis [Recovering/Resolving]
